FAERS Safety Report 7162329-6 (Version None)
Quarter: 2010Q4

REPORT INFORMATION
  Report Type: 
  Country: None (occurrence: None)
  Receive Date: 20101215
  Receipt Date: 20091008
  Transmission Date: 20110411
  Serious: Yes (Hospitalization, Other)
  Sender: FDA-Public Use
  Company Number: DE-PFIZER INC-2009256770

PATIENT
  Age: 21 Year

DRUGS (3)
  1. LYRICA [Suspect]
     Dosage: 75 MG, 2X/DAY
     Route: 048
     Dates: start: 20090501
  2. TRAMAL [Concomitant]
     Dosage: UNK
     Route: 048
  3. NOVALGIN [Concomitant]
     Dosage: UNK
     Route: 048

REACTIONS (1)
  - ACUTE HEPATIC FAILURE [None]
